FAERS Safety Report 7595573-4 (Version None)
Quarter: 2011Q3

REPORT INFORMATION
  Report Type: 
  Country: None (occurrence: None)
  Receive Date: 20110707
  Receipt Date: 20110628
  Transmission Date: 20111222
  Serious: Yes (Other)
  Sender: FDA-Public Use
  Company Number: US-GLAXOSMITHKLINE-A0933472A

PATIENT
  Age: 74 Year
  Sex: Female

DRUGS (5)
  1. ASPIRIN [Concomitant]
  2. TOPROL-XL [Concomitant]
  3. LAMICTAL [Suspect]
     Indication: PARTIAL SEIZURES
     Dosage: 25MG TWICE PER DAY
     Route: 048
     Dates: start: 20040101
  4. PLAVIX [Concomitant]
  5. INSULIN [Concomitant]

REACTIONS (9)
  - FEAR [None]
  - CONTUSION [None]
  - HALLUCINATION [None]
  - FLUSHING [None]
  - EYE DISORDER [None]
  - BLOOD PRESSURE INCREASED [None]
  - CONVULSION [None]
  - TREMOR [None]
  - DRUG INEFFECTIVE [None]
